FAERS Safety Report 14912408 (Version 5)
Quarter: 2022Q3

REPORT INFORMATION
  Report Type: Report from Study
  Country: US (occurrence: None)
  Receive Date: 20180518
  Receipt Date: 20220711
  Transmission Date: 20221027
  Serious: Yes (Hospitalization)
  Sender: FDA-Public Use
  Company Number: US-ROCHE-2122899

PATIENT
  Age: 61 Year
  Sex: Female
  Weight: 45.2 kg

DRUGS (35)
  1. ATEZOLIZUMAB [Suspect]
     Active Substance: ATEZOLIZUMAB
     Indication: Ovarian cancer
     Dosage: DATE OF MOST RECENT DOSE OF BLINDED ATEZOLIZUMAB PRIOR TO AE ONSET : 25/APR/2018
     Route: 042
     Dates: start: 20180425
  2. BEVACIZUMAB [Suspect]
     Active Substance: BEVACIZUMAB
     Indication: Ovarian cancer
     Dosage: DATE OF MOST RECENT DOSE(676.5 MG) OF BLINDED BEVACIZUMAB PRIOR TO AE ONSET : 25/APR/2018
     Route: 042
     Dates: start: 20180425
  3. PACLITAXEL [Suspect]
     Active Substance: PACLITAXEL
     Indication: Ovarian cancer
     Dosage: DATE OF MOST RECENT DOSE (241.5 MG) OF PACLITAXEL PRIOR TO AE ONSET : 25/APR/2018
     Route: 042
     Dates: start: 20180425
  4. CARBOPLATIN [Suspect]
     Active Substance: CARBOPLATIN
     Indication: Ovarian cancer
     Dosage: DATE OF MOST RECENT DOSE (510.6 MG) OF CARBOPLATIN PRIOR TO AE ONSET : 25/APR/2018
     Route: 042
     Dates: start: 20180425
  5. ACETAMINOPHEN [Concomitant]
     Active Substance: ACETAMINOPHEN
     Indication: Pyrexia
     Dates: start: 20180507, end: 20180507
  6. ACETAMINOPHEN [Concomitant]
     Active Substance: ACETAMINOPHEN
     Dates: start: 20180508, end: 20180510
  7. DEXAMETHASONE [Concomitant]
     Active Substance: DEXAMETHASONE
     Route: 048
     Dates: start: 20180424, end: 20180926
  8. CODEINE [Concomitant]
     Active Substance: CODEINE
     Indication: Cough
     Dates: start: 20180327, end: 20180413
  9. GUAIFENESIN [Concomitant]
     Active Substance: GUAIFENESIN
     Indication: Cough
     Dates: start: 20180327, end: 20180413
  10. GUAIFENESIN [Concomitant]
     Active Substance: GUAIFENESIN
     Dates: start: 20180510, end: 20180510
  11. DOCUSATE [Concomitant]
     Active Substance: DOCUSATE
     Indication: Constipation
     Dates: start: 20180327, end: 20180413
  12. MUCINEX DM [Concomitant]
     Active Substance: DEXTROMETHORPHAN HYDROBROMIDE\GUAIFENESIN
     Indication: Cough
     Dates: start: 20180327, end: 20180413
  13. FLONASE [Concomitant]
     Active Substance: FLUTICASONE PROPIONATE
     Indication: Cough
     Dosage: ROUTE: OTHER
     Dates: start: 20180327, end: 20180413
  14. LORATADINE [Concomitant]
     Active Substance: LORATADINE
     Indication: Rhinitis allergic
     Dates: start: 20091201, end: 20180507
  15. FISH OIL [Concomitant]
     Active Substance: FISH OIL
     Dates: start: 20130419, end: 20180507
  16. HYDROCORTISONE [Concomitant]
     Active Substance: HYDROCORTISONE
     Indication: Rash
     Route: 061
     Dates: start: 20180328, end: 20180516
  17. CETIRIZINE [Concomitant]
     Active Substance: CETIRIZINE HYDROCHLORIDE
     Dates: start: 20180425, end: 20180926
  18. FAMOTIDINE [Concomitant]
     Active Substance: FAMOTIDINE
     Dates: start: 20180425, end: 20180926
  19. BENZONATATE [Concomitant]
     Active Substance: BENZONATATE
     Indication: Cough
     Dates: start: 20180508, end: 20180508
  20. SENNOSIDES [Concomitant]
     Active Substance: SENNOSIDES
     Indication: Constipation
     Dates: start: 20180510, end: 20180512
  21. DOCUSATE SODIUM [Concomitant]
     Active Substance: DOCUSATE SODIUM
     Indication: Constipation
     Dates: start: 20180427, end: 20180428
  22. DOCUSATE SODIUM [Concomitant]
     Active Substance: DOCUSATE SODIUM
     Dates: start: 20180510, end: 20180512
  23. MELATONIN [Concomitant]
     Active Substance: MELATONIN
     Indication: Insomnia
     Dates: start: 20180509, end: 20180510
  24. NORCO [Concomitant]
     Active Substance: ACETAMINOPHEN\HYDROCODONE BITARTRATE
     Indication: Abdominal pain
     Dates: start: 20180426, end: 20180426
  25. MORPHINE [Concomitant]
     Active Substance: MORPHINE
     Indication: Abdominal pain
     Dates: start: 20180426, end: 20180426
  26. CEFEPIME [Concomitant]
     Active Substance: CEFEPIME HYDROCHLORIDE
     Indication: Febrile neutropenia
     Dates: start: 20180507, end: 20180507
  27. CEFEPIME [Concomitant]
     Active Substance: CEFEPIME HYDROCHLORIDE
     Dates: start: 20180508, end: 20180509
  28. LIDOCAINE VISCOUS [Concomitant]
     Active Substance: LIDOCAINE HYDROCHLORIDE
     Indication: Abdominal pain
     Dates: start: 20180426, end: 20180426
  29. FUROSEMIDE [Concomitant]
     Active Substance: FUROSEMIDE
     Indication: Cardiac failure
     Dates: start: 20180426, end: 20180426
  30. OXYCODONE [Concomitant]
     Active Substance: OXYCODONE
     Indication: Abdominal pain
     Dates: start: 20180427, end: 20180428
  31. OXYCODONE [Concomitant]
     Active Substance: OXYCODONE
     Dates: start: 20180428, end: 20180429
  32. MIRALAX [Concomitant]
     Active Substance: POLYETHYLENE GLYCOL 3350
     Indication: Constipation
     Dates: start: 20180427, end: 20180428
  33. BISACODYL [Concomitant]
     Active Substance: BISACODYL
     Indication: Constipation
     Dates: start: 20180428, end: 20180428
  34. AQUAPHOR (UNITED STATES) [Concomitant]
     Indication: Rash
     Dates: start: 20180510, end: 20180516
  35. TRIAMCINOLONE [Concomitant]
     Active Substance: TRIAMCINOLONE
     Indication: Rash
     Route: 061
     Dates: start: 20180510, end: 20180511

REACTIONS (1)
  - Febrile neutropenia [Recovered/Resolved]

NARRATIVE: CASE EVENT DATE: 20180507
